FAERS Safety Report 4374787-0 (Version None)
Quarter: 2004Q2

REPORT INFORMATION
  Report Type: 
  Country: None (occurrence: None)
  Receive Date: 20040604
  Receipt Date: 20040524
  Transmission Date: 20050107
  Serious: Yes (Hospitalization)
  Sender: FDA-Public Use
  Company Number: 2004215575FR

PATIENT
  Age: 26 Year
  Sex: Female

DRUGS (6)
  1. CELEBREX [Suspect]
     Dosage: 1 DF, QD, ORAL
     Route: 048
     Dates: start: 20031013
  2. OMEPRAZOLE [Suspect]
     Dosage: 20 MG, QD, ORAL
     Route: 048
     Dates: end: 20040422
  3. VINBLASTINE SULFATE [Concomitant]
  4. MEDROL [Concomitant]
  5. LEVOTHYROX (LEVOTHYROXINE SODIUM) [Concomitant]
  6. NEURONTIN [Concomitant]

REACTIONS (1)
  - HAEMOLYTIC ANAEMIA [None]
